FAERS Safety Report 19442088 (Version 1)
Quarter: 2021Q2

REPORT INFORMATION
  Report Type: Spontaneous
  Country: US (occurrence: US)
  Receive Date: 20210617
  Receipt Date: 20210617
  Transmission Date: 20210717
  Serious: Yes (Hospitalization)
  Sender: FDA-Public Use
  Company Number: None

PATIENT
  Sex: Male

DRUGS (15)
  1. FLOVENT HFA [Concomitant]
     Active Substance: FLUTICASONE PROPIONATE
  2. ATORVASTATIN [Concomitant]
     Active Substance: ATORVASTATIN
  3. CEFPODOXIME [Concomitant]
     Active Substance: CEFPODOXIME
  4. CLOPIDOGREL [Concomitant]
     Active Substance: CLOPIDOGREL BISULFATE
  5. BUDESONIDE. [Concomitant]
     Active Substance: BUDESONIDE
  6. METOPROL TAR [Concomitant]
  7. PREDNISONE. [Concomitant]
     Active Substance: PREDNISONE
  8. NUCALA [Suspect]
     Active Substance: MEPOLIZUMAB
     Indication: ASTHMA
     Dosage: ?          OTHER FREQUENCY:Q4WK;?
     Route: 058
     Dates: start: 201911
  9. AMOX / K CLAV [Concomitant]
     Active Substance: AMOXICILLIN\CLAVULANATE POTASSIUM
  10. FORTEO [Suspect]
     Active Substance: TERIPARATIDE
     Indication: OSTEOPOROSIS
     Route: 058
     Dates: start: 20200821
  11. HYDROMORPHON [Concomitant]
     Active Substance: HYDROMORPHONE
  12. IPRATROPIUM/SOL ALBUTER [Concomitant]
  13. METRONIDAZOL [Concomitant]
     Active Substance: METRONIDAZOLE
  14. ZAFIRLUKAST. [Concomitant]
     Active Substance: ZAFIRLUKAST
  15. TOBRAMYCIN. [Concomitant]
     Active Substance: TOBRAMYCIN

REACTIONS (1)
  - Pancreatitis [None]
